FAERS Safety Report 5235900-6 (Version None)
Quarter: 2007Q1

REPORT INFORMATION
  Report Type: 
  Country: None (occurrence: None)
  Receive Date: 20061208
  Receipt Date: 20060426
  Transmission Date: 20070707
  Serious: Yes (Other)
  Sender: FDA-Public Use
  Company Number: 2006UW07560

PATIENT
  Age: 66 Year
  Sex: Male
  Weight: 184 kg

DRUGS (10)
  1. CRESTOR [Suspect]
     Indication: BLOOD CHOLESTEROL INCREASED
     Dosage: 20 MG DAILY PO
     Route: 048
     Dates: start: 20060109
  2. WARFARIN SODIUM [Concomitant]
  3. GLYBURIDE [Concomitant]
  4. FENLODIPINE [Concomitant]
  5. METFORMIN HCL [Concomitant]
  6. HHYDROCHLOROTHIAZIDE [Concomitant]
  7. VITAMIN CAP [Concomitant]
  8. ASPIRIN [Concomitant]
  9. METAMUCIL [Concomitant]
  10. CATAPRES [Concomitant]

REACTIONS (1)
  - INTERNATIONAL NORMALISED RATIO DECREASED [None]
